FAERS Safety Report 23641600 (Version 1)
Quarter: 2024Q1

REPORT INFORMATION
  Report Type: Other
  Country: CN (occurrence: CN)
  Receive Date: 20240318
  Receipt Date: 20240318
  Transmission Date: 20240409
  Serious: Yes (Death)
  Sender: FDA-Public Use
  Company Number: CN-002147023-NVSC2024CN054472

PATIENT
  Age: 55 Year
  Sex: Female

DRUGS (1)
  1. LUCENTIS [Suspect]
     Active Substance: RANIBIZUMAB
     Indication: Diabetic retinal oedema
     Dosage: 1 UNK, QMO
     Route: 047
     Dates: start: 20231213, end: 20240115

REACTIONS (4)
  - Diabetic retinal oedema [Fatal]
  - Condition aggravated [Fatal]
  - Lung disorder [Fatal]
  - Organ failure [Fatal]

NARRATIVE: CASE EVENT DATE: 20240116
